FAERS Safety Report 4884892-8 (Version None)
Quarter: 2006Q1

REPORT INFORMATION
  Report Type: 
  Country: None (occurrence: None)
  Receive Date: 20060117
  Receipt Date: 20060104
  Transmission Date: 20060701
  Serious: Yes (Other)
  Sender: FDA-Public Use
  Company Number: 2006004140

PATIENT
  Age: 83 Year
  Sex: Male
  Weight: 88.4514 kg

DRUGS (1)
  1. VIAGRA [Suspect]
     Indication: ERECTILE DYSFUNCTION
     Dosage: 50 MG (50 MG, AS NECESSARY)

REACTIONS (2)
  - DRUG INEFFECTIVE [None]
  - RENAL ATROPHY [None]
